FAERS Safety Report 9705576 (Version 1)
Quarter: 2013Q4

REPORT INFORMATION
  Report Type: Spontaneous
  Country: US (occurrence: US)
  Receive Date: 20131122
  Receipt Date: 20131122
  Transmission Date: 20140711
  Serious: No
  Sender: FDA-Public Use
  Company Number: US-GILEAD-2008-0017042

PATIENT
  Sex: Female
  Weight: 68.04 kg

DRUGS (15)
  1. LETAIRIS [Suspect]
     Indication: PULMONARY ARTERIAL HYPERTENSION
     Route: 048
     Dates: start: 20080523
  2. REVATIO [Concomitant]
     Route: 048
  3. TRACLEER [Concomitant]
     Route: 048
  4. PROCARDIA XL [Concomitant]
     Route: 048
  5. LISINOPRIL [Concomitant]
     Route: 048
  6. LASIX [Concomitant]
     Route: 048
  7. COUMADIN [Concomitant]
     Route: 048
  8. THEOPHYLLINE [Concomitant]
     Route: 048
  9. CELEBREX [Concomitant]
     Route: 048
  10. VICODIN 5/500 [Concomitant]
     Route: 048
  11. ASPRIN [Concomitant]
     Route: 048
  12. OXYBUTYNIN [Concomitant]
     Route: 048
  13. FOSAMAX [Concomitant]
     Route: 048
  14. CALCARB [Concomitant]
     Route: 048
  15. MULTIVITAMIN [Concomitant]
     Route: 048

REACTIONS (3)
  - Nausea [None]
  - Dizziness [None]
  - Malaise [None]
